FAERS Safety Report 10242286 (Version 1)
Quarter: 2014Q2

REPORT INFORMATION
  Report Type: Spontaneous
  Country: US (occurrence: US)
  Receive Date: 20140617
  Receipt Date: 20140617
  Transmission Date: 20141212
  Serious: Yes (Other)
  Sender: FDA-Public Use
  Company Number: US-DSJP-DSU-2014-111229

PATIENT
  Sex: 0

DRUGS (2)
  1. BENICAR [Suspect]
     Indication: HYPERTENSION
     Dosage: 40 MG, QD
     Route: 048
  2. BENICAR HCT [Suspect]
     Indication: HYPERTENSION
     Dosage: 40/25MG, QD
     Route: 048

REACTIONS (2)
  - Renal failure chronic [Not Recovered/Not Resolved]
  - Gout [Unknown]
